FAERS Safety Report 7662572-3 (Version None)
Quarter: 2011Q3

REPORT INFORMATION
  Report Type: 
  Country: None (occurrence: None)
  Receive Date: 20110805
  Receipt Date: 20100826
  Transmission Date: 20111222
  Serious: No
  Sender: FDA-Public Use
  Company Number: US-ABBOTT-10P-163-0666308-00

PATIENT
  Sex: Female
  Weight: 53.118 kg

DRUGS (5)
  1. NIASPAN [Suspect]
     Indication: ARTERIOSCLEROSIS
  2. NIASPAN [Suspect]
     Indication: BLOOD CHOLESTEROL INCREASED
     Dosage: AT BEDTIME
     Dates: start: 20100811
  3. CRESTOR [Concomitant]
     Indication: PRODUCT USED FOR UNKNOWN INDICATION
  4. AZOR [Concomitant]
     Indication: HYPERTENSION
     Dosage: 10/40MG
  5. NIASPAN [Suspect]
     Indication: BLOOD TRIGLYCERIDES INCREASED

REACTIONS (3)
  - DRY MOUTH [None]
  - ASTHENIA [None]
  - FATIGUE [None]
